FAERS Safety Report 9034037 (Version 1)
Quarter: 2013Q1

REPORT INFORMATION
  Report Type: Spontaneous
  Country: US (occurrence: None)
  Receive Date: 20130116
  Receipt Date: 20130116
  Transmission Date: 20140127
  Serious: Yes (Hospitalization)
  Sender: FDA-Public Use
  Company Number: None

PATIENT
  Sex: Male
  Weight: 91.9 kg

DRUGS (9)
  1. BELATACEPT [Suspect]
     Indication: RENAL TRANSPLANT
     Dosage: 1000MG ONCE IV
     Route: 042
     Dates: end: 20121221
  2. CELLCEPT [Suspect]
     Indication: RENAL TRANSPLANT
     Dosage: 1000MG BID PO
     Route: 048
     Dates: start: 20121212
  3. ALEMTUZUMAB [Concomitant]
  4. BELATACEPT [Concomitant]
  5. METHYLPREDNISOLONE [Concomitant]
  6. METHYLPREDNISOLONE [Concomitant]
  7. METHYLPREDNISOLONE [Concomitant]
  8. PREDNISONE [Concomitant]
  9. BELATACEPT [Concomitant]

REACTIONS (2)
  - Complications of transplanted kidney [None]
  - Blood creatinine increased [None]
